FAERS Safety Report 10655910 (Version 2)
Quarter: 2014Q4

REPORT INFORMATION
  Report Type: Spontaneous
  Country: US (occurrence: US)
  Receive Date: 20141216
  Receipt Date: 20141216
  Transmission Date: 20150529
  Serious: Yes (Death, Hospitalization, Disabling, Other)
  Sender: FDA-Public Use
  Company Number: US-CELGENEUS-163-20785-13100337

PATIENT
  Sex: Female
  Weight: 77.63 kg

DRUGS (1)
  1. THALOMID [Suspect]
     Active Substance: THALIDOMIDE
     Indication: PLASMA CELL MYELOMA
     Dosage: 100 MILLIGRAM
     Route: 048
     Dates: start: 20130829, end: 20130930

REACTIONS (2)
  - Plasma cell myeloma [Fatal]
  - Renal failure [Fatal]

NARRATIVE: CASE EVENT DATE: 2013
